FAERS Safety Report 6128952-2 (Version None)
Quarter: 2009Q1

REPORT INFORMATION
  Report Type: 
  Country: None (occurrence: None)
  Receive Date: 20090324
  Receipt Date: 20090313
  Transmission Date: 20090719
  Serious: Yes (Other)
  Sender: FDA-Public Use
  Company Number: PHEH2007US04665

PATIENT
  Sex: Female

DRUGS (2)
  1. ZOMETA [Suspect]
     Indication: OSTEOPOROSIS
  2. AREDIA [Suspect]
     Indication: OSTEOPOROSIS

REACTIONS (9)
  - DENTAL CARIES [None]
  - ENDODONTIC PROCEDURE [None]
  - EXOSTOSIS [None]
  - OSTEONECROSIS [None]
  - PAIN [None]
  - PERIODONTITIS [None]
  - SURGERY [None]
  - SWELLING [None]
  - TOOTH EXTRACTION [None]
